FAERS Safety Report 16649727 (Version 1)
Quarter: 2019Q3

REPORT INFORMATION
  Report Type: Spontaneous
  Country: CN (occurrence: CN)
  Receive Date: 20190730
  Receipt Date: 20190730
  Transmission Date: 20191004
  Serious: Yes (Other)
  Sender: FDA-Public Use
  Company Number: CN-BAXTER-2019BAX014476

PATIENT
  Age: 66 Year
  Sex: Female
  Weight: 69 kg

DRUGS (2)
  1. 20% MANNITOL INJECTION [Suspect]
     Active Substance: MANNITOL
     Indication: DEHYDRATION
  2. 20% MANNITOL INJECTION [Suspect]
     Active Substance: MANNITOL
     Indication: INTERVERTEBRAL DISC PROTRUSION
     Route: 041
     Dates: start: 20190702, end: 20190707

REACTIONS (2)
  - Rash pruritic [Recovered/Resolved]
  - Rash maculo-papular [Recovered/Resolved]

NARRATIVE: CASE EVENT DATE: 20190707
